FAERS Safety Report 7260253-1 (Version None)
Quarter: 2011Q1

REPORT INFORMATION
  Report Type: 
  Country: None (occurrence: None)
  Receive Date: 20110130
  Receipt Date: 20101014
  Transmission Date: 20110831
  Serious: No
  Sender: FDA-Public Use
  Company Number: US-ABBOTT-10P-163-0679411-00

PATIENT
  Sex: Female

DRUGS (2)
  1. UNKNOWN TOPICAL CREAM [Concomitant]
     Indication: PSORIASIS
  2. HUMIRA [Suspect]
     Indication: PSORIASIS

REACTIONS (4)
  - HYPOAESTHESIA [None]
  - HYPERTENSION [None]
  - DIZZINESS [None]
  - HOT FLUSH [None]
